FAERS Safety Report 16316549 (Version 3)
Quarter: 2019Q2

REPORT INFORMATION
  Report Type: Report from Study
  Country: US (occurrence: US)
  Receive Date: 20190515
  Receipt Date: 20190522
  Transmission Date: 20190711
  Serious: No
  Sender: FDA-Public Use
  Company Number: PHEH2019US020522

PATIENT
  Sex: Male

DRUGS (1)
  1. ENTRESTO [Suspect]
     Active Substance: SACUBITRIL\VALSARTAN
     Indication: CARDIAC FAILURE CONGESTIVE
     Dosage: UNK
     Route: 048

REACTIONS (6)
  - Heart rate decreased [Unknown]
  - Dizziness [Unknown]
  - Therapeutic response unexpected [Unknown]
  - Gait disturbance [Recovering/Resolving]
  - Asthenia [Unknown]
  - Hypotension [Unknown]
